FAERS Safety Report 19942160 (Version 1)
Quarter: 2021Q4

REPORT INFORMATION
  Report Type: Spontaneous
  Country: US (occurrence: US)
  Receive Date: 20211011
  Receipt Date: 20211011
  Transmission Date: 20220304
  Serious: No
  Sender: FDA-Public Use
  Company Number: US-PFIZER INC-2021285789

PATIENT
  Age: 77 Year
  Sex: Female

DRUGS (27)
  1. DEMEROL [Suspect]
     Active Substance: MEPERIDINE HYDROCHLORIDE
     Dosage: UNK
  2. ACETAMINOPHEN [Concomitant]
     Active Substance: ACETAMINOPHEN
     Indication: Pain
     Dosage: 650 MG, EVERY 4 HOURS AS NEEDED
     Dates: start: 20210225
  3. ALLOPURINOL [Concomitant]
     Active Substance: ALLOPURINOL
     Dosage: 1 TABLET EVERY OTHER DAY
     Dates: start: 20210225
  4. ASCORBIC ACID [Concomitant]
     Active Substance: ASCORBIC ACID
     Indication: Hair disorder
     Dosage: TAKE 2 CAPS BY MOUTH DAILY
     Route: 048
     Dates: start: 20210225
  5. .ALPHA.-TOCOPHEROL [Concomitant]
     Active Substance: .ALPHA.-TOCOPHEROL
     Indication: Skin disorder
     Dosage: TAKE 2 CAPS BY MOUTH DAILY
     Route: 048
     Dates: start: 20210225
  6. BIOTIN [Concomitant]
     Active Substance: BIOTIN
     Indication: Nail disorder
     Dosage: TAKE 2 CAPS BY MOUTH DAILY
     Route: 048
     Dates: start: 20210225
  7. LIPITOR [Concomitant]
     Active Substance: ATORVASTATIN CALCIUM
     Dosage: TAKE 1 TAB (20 MG) BY MOUTH DAILY
     Route: 048
     Dates: start: 20210225
  8. BETAMETHASONE DIPROPIONATE [Concomitant]
     Active Substance: BETAMETHASONE DIPROPIONATE
     Indication: Inflammation
     Dosage: APPLY 2 TIMES DAILY
     Dates: start: 20210225
  9. CALCIUM [Concomitant]
     Active Substance: CALCIUM
     Dosage: TAKE 1 TAB BY MOUTH 2 TIMES DAILY
     Route: 048
     Dates: start: 20210225
  10. SINEMET [Concomitant]
     Active Substance: CARBIDOPA\LEVODOPA
     Dosage: TAKE 1 TABLET THREE TIMES A DAY
     Dates: start: 20210225
  11. CLINDAMYCIN PHOSPHATE [Concomitant]
     Active Substance: CLINDAMYCIN PHOSPHATE
     Dosage: APPLY 2 TIMES DAILY USE THIN FILM IN ARMPITS TWICE A DAY UNTIL HEALED
     Dates: start: 20210225
  12. RESTASIS [Concomitant]
     Active Substance: CYCLOSPORINE
     Dosage: PLACE 1 DROP IN BOTH EYES 2 TIMES DAILY
     Dates: start: 20210225
  13. HYALURONATE SODIUM [Concomitant]
     Active Substance: HYALURONATE SODIUM
     Dosage: BY APPLY EXTERNALLY ROUTE
     Dates: start: 20210225
  14. INSULIN BEEF [Concomitant]
     Active Substance: INSULIN BEEF
     Indication: Diabetes mellitus
     Dosage: INJECT 26 UNITS UNDER SKIN EVERY MORNING AND 22 UNITS EVERY EVENING
     Dates: start: 20210225
  15. ISOSORBIDE MONONITRATE [Concomitant]
     Active Substance: ISOSORBIDE MONONITRATE
     Dosage: TAKE 1 TAB (30 MG) BY MOUTH EVERY MORNING
     Dates: start: 20210225
  16. NIZORAL [Concomitant]
     Active Substance: KETOCONAZOLE
     Indication: Seborrhoea
     Dosage: ONCE OR TWICE A WEEK FOR ROUGH PATCHES ON SCALP
     Dates: start: 20210225
  17. PREVACID [Concomitant]
     Active Substance: LANSOPRAZOLE
     Dosage: TAKE 15 MG BY MOUTH DAILY
     Route: 048
     Dates: start: 20210225
  18. LISINOPRIL [Concomitant]
     Active Substance: LISINOPRIL
     Dosage: TAKE 1 TABLET DAILY
     Dates: start: 20210225
  19. CLARITIN [Concomitant]
     Active Substance: LORATADINE
     Dosage: 10 MG BY MOUTH DAILY
     Route: 048
     Dates: start: 20210225
  20. LOTEMAX [Concomitant]
     Active Substance: LOTEPREDNOL ETABONATE
     Dosage: PLACE 1 DROP IN BOTH EYES 2 TIMES DAILY
     Dates: start: 20210225
  21. MICONAZOLE [Concomitant]
     Active Substance: MICONAZOLE
     Dosage: APPLY 2 TIMES DAILY TO GROIN FOLDS
     Route: 048
     Dates: start: 20210225
  22. ZOFRAN [Concomitant]
     Active Substance: ONDANSETRON HYDROCHLORIDE
     Indication: Nausea
     Dosage: TAKE 1 TABLET (4 MG) BY MOUTH EVERY 6 HOURS AS NEEDED
     Route: 048
     Dates: start: 20210225
  23. PYRIDIUM [Concomitant]
     Active Substance: PHENAZOPYRIDINE
     Dosage: 200 MG, 3X/DAY
     Route: 048
     Dates: start: 20210225
  24. PREMARIN [Concomitant]
     Active Substance: ESTROGENS, CONJUGATED
     Dosage: EVERY 7 DAYS PLACE JUST INSIDE OF VAGINA
     Dates: start: 20210225
  25. SYSTANE (HYPROMELLOSE 2910 (4000 MPA.S)) [Concomitant]
     Active Substance: HYPROMELLOSE 2910 (4000 MPA.S)
     Dosage: PLACE 1 DROP INTO EYE EVERY 6 HOURS
     Dates: start: 20210225
  26. SENOKOT-S [Concomitant]
     Active Substance: DOCUSATE SODIUM\SENNOSIDES
     Dosage: TAKE 1 TABLET BY MOUTH 2 TIMES DAILY
     Route: 048
     Dates: start: 20210225
  27. TUMS ULTRA [Concomitant]
     Active Substance: CALCIUM CARBONATE
     Dosage: CHEW AND SWALLOW 1 TAB DAILY AS NEEDED
     Dates: start: 20210225

REACTIONS (3)
  - Drug hypersensitivity [Unknown]
  - Hypotension [Unknown]
  - Dizziness [Unknown]
